FAERS Safety Report 25837959 (Version 1)
Quarter: 2025Q3

REPORT INFORMATION
  Report Type: Spontaneous
  Country: US (occurrence: None)
  Receive Date: 20250923
  Receipt Date: 20250923
  Transmission Date: 20251021
  Serious: Yes (Other)
  Sender: FDA-CTU
  Company Number: None

PATIENT

DRUGS (1)
  1. FOSAPREPITANT [Suspect]
     Active Substance: FOSAPREPITANT
     Route: 042

REACTIONS (3)
  - Dyspnoea [None]
  - Flushing [None]
  - Hyperhidrosis [None]

NARRATIVE: CASE EVENT DATE: 20250911
